FAERS Safety Report 10594087 (Version 4)
Quarter: 2015Q2

REPORT INFORMATION
  Report Type: Spontaneous
  Country: SK (occurrence: SK)
  Receive Date: 20141119
  Receipt Date: 20150429
  Transmission Date: 20150821
  Serious: Yes (Hospitalization)
  Sender: FDA-Public Use
  Company Number: SK-ABBVIE-14P-260-1310207-00

PATIENT
  Age: 8 Month
  Sex: Male
  Weight: 10 kg

DRUGS (1)
  1. KLACID 250MG/5ML [Suspect]
     Active Substance: CLARITHROMYCIN
     Indication: BRONCHITIS
     Route: 048
     Dates: start: 20141024, end: 20141031

REACTIONS (2)
  - Anaemia [Recovered/Resolved]
  - Decreased appetite [Recovered/Resolved]

NARRATIVE: CASE EVENT DATE: 201410
